FAERS Safety Report 4287385-4 (Version None)
Quarter: 2004Q1

REPORT INFORMATION
  Report Type: 
  Country: None (occurrence: None)
  Receive Date: 20040209
  Receipt Date: 20030617
  Transmission Date: 20041129
  Serious: No
  Sender: FDA-Public Use
  Company Number: US-GLAXOSMITHKLINE-A0412949A

PATIENT
  Age: 82 Year
  Sex: Female

DRUGS (5)
  1. PAXIL CR [Suspect]
     Indication: DEPRESSION
     Route: 048
     Dates: start: 20030501
  2. PAXIL [Suspect]
     Indication: DEPRESSION
     Dosage: 10MG PER DAY
     Route: 048
     Dates: start: 20030103
  3. PREMARIN [Concomitant]
  4. ASACOL [Concomitant]
  5. ASPIRIN [Concomitant]

REACTIONS (2)
  - AMNESIA [None]
  - SOMNOLENCE [None]
